FAERS Safety Report 7486303-5 (Version None)
Quarter: 2011Q2

REPORT INFORMATION
  Report Type: 
  Country: None (occurrence: None)
  Receive Date: 20110517
  Receipt Date: 20110512
  Transmission Date: 20111010
  Serious: Yes (Other)
  Sender: FDA-Public Use
  Company Number: US-PFIZER INC-2008056816

PATIENT
  Sex: Female
  Weight: 95.7 kg

DRUGS (12)
  1. TRIAZOLAM [Concomitant]
     Dosage: 0.5 MG, DAILY
  2. HYDROCODONE BITARTRATE AND IBUPROFEN [Concomitant]
     Dosage: UNK
  3. GLATIRAMER [Concomitant]
     Dosage: 40 MG, UNK
  4. NEXIUM [Concomitant]
     Dosage: UNK
  5. CYMBALTA [Suspect]
     Indication: FIBROMYALGIA
     Dosage: 60 MG, DAILY
     Route: 048
     Dates: start: 20080101
  6. FUROSEMIDE [Concomitant]
     Dosage: 30 MG, DAILY
  7. HYDROCODONE [Concomitant]
     Dosage: UNK, 6X/DAY
  8. LYRICA [Suspect]
     Indication: FIBROMYALGIA
     Dosage: 75 MG, 2X/DAY
     Dates: start: 20080101, end: 20080101
  9. LYRICA [Suspect]
     Dosage: UNK, DAILY
     Route: 048
     Dates: start: 20080101, end: 20080601
  10. LEVOTHYROXINE SODIUM [Concomitant]
     Dosage: 88 UG, 1X/DAY
  11. FENTANYL [Concomitant]
     Dosage: 20 MG, 4X/DAY
  12. CYCLOBENZAPRINE [Concomitant]
     Dosage: 40 MG, DAILY

REACTIONS (7)
  - EYE PAIN [None]
  - PAIN [None]
  - WEIGHT INCREASED [None]
  - MULTIPLE SCLEROSIS [None]
  - OESOPHAGEAL RUPTURE [None]
  - VISUAL IMPAIRMENT [None]
  - INTERVERTEBRAL DISC DISORDER [None]
